FAERS Safety Report 5999650-0 (Version None)
Quarter: 2008Q4

REPORT INFORMATION
  Report Type: 
  Country: None (occurrence: None)
  Receive Date: 20081215
  Receipt Date: 20081203
  Transmission Date: 20090506
  Serious: Yes (Other)
  Sender: FDA-Public Use
  Company Number: AU-AMGEN-US320148

PATIENT
  Sex: Female
  Weight: 72 kg

DRUGS (6)
  1. ENBREL [Suspect]
     Indication: PSORIASIS
     Route: 058
     Dates: start: 20080201, end: 20080908
  2. FOLIC ACID [Concomitant]
     Route: 048
  3. CIPRAMIL [Concomitant]
     Indication: DEPRESSION
     Dosage: UNKNOWN
  4. HYDROCHLOROTHIAZIDE [Concomitant]
     Indication: DEPRESSION
     Dosage: UNKNOWN
  5. METHOTREXATE [Concomitant]
     Indication: PSORIASIS
     Route: 048
     Dates: start: 20070201, end: 20080901
  6. ATACAND [Concomitant]
     Indication: DEPRESSION
     Dosage: UNKNOWN

REACTIONS (4)
  - LIVER FUNCTION TEST ABNORMAL [None]
  - PANCYTOPENIA [None]
  - SKIN ULCER [None]
  - VULVAL ULCERATION [None]
